FAERS Safety Report 6178902-8 (Version None)
Quarter: 2009Q2

REPORT INFORMATION
  Report Type: 
  Country: None (occurrence: None)
  Receive Date: 20090505
  Receipt Date: 20090205
  Transmission Date: 20091009
  Serious: Yes (Hospitalization)
  Sender: FDA-Public Use
  Company Number: BE-PFIZER INC-2009166939

PATIENT

DRUGS (11)
  1. BLINDED *PLACEBO [Suspect]
     Indication: COLORECTAL CANCER
     Dosage: 37.5 MG, 1X/DAY
     Route: 048
     Dates: start: 20071029, end: 20090127
  2. BLINDED SUNITINIB MALATE [Suspect]
     Indication: COLORECTAL CANCER
     Dosage: 37.5 MG, 1X/DAY
     Route: 048
     Dates: start: 20071029, end: 20090127
  3. IRINOTECAN HCL [Suspect]
     Indication: COLORECTAL CANCER
     Dosage: FREQUENCY: EVERY 2 WEEKS;
     Route: 042
     Dates: start: 20071029, end: 20081013
  4. FLUOROURACIL [Suspect]
     Indication: COLORECTAL CANCER
     Dosage: FREQUENCY: EVERY 2 WEEKS;
     Route: 042
     Dates: start: 20071029, end: 20081015
  5. LEUCOVORIN CALCIUM [Suspect]
     Indication: COLORECTAL CANCER
     Dosage: FREQUENCY: EVERY 2 WEEKS;
     Route: 042
     Dates: start: 20071029, end: 20081013
  6. CARDIOASPIRINE [Concomitant]
     Dosage: UNK
     Dates: start: 19980101
  7. LIPITOR [Concomitant]
     Dosage: UNK
     Dates: start: 19980101
  8. BISOPROLOL FUMARATE [Concomitant]
  9. MOLSIDOMINE [Concomitant]
     Dosage: UNK
     Dates: start: 20071202
  10. ACTAPULGITE [Concomitant]
     Dosage: UNK
     Dates: start: 20090119
  11. LOPERAMIDE [Concomitant]
     Dosage: UNK
     Dates: start: 20081124

REACTIONS (1)
  - INTESTINAL OBSTRUCTION [None]
